FAERS Safety Report 14821873 (Version 2)
Quarter: 2018Q2

REPORT INFORMATION
  Report Type: Spontaneous
  Country: BG (occurrence: BG)
  Receive Date: 20180427
  Receipt Date: 20180515
  Transmission Date: 20180711
  Serious: Yes (Other)
  Sender: FDA-Public Use
  Company Number: BG-BAYER-2018-078089

PATIENT
  Age: 62 Year
  Sex: Male

DRUGS (1)
  1. NEXAVAR [Suspect]
     Active Substance: SORAFENIB
     Indication: HEPATOCELLULAR CARCINOMA
     Dosage: 800 MG, UNK
     Route: 048
     Dates: start: 20170821

REACTIONS (3)
  - Metastases to lymph nodes [None]
  - Metastases to spleen [None]
  - Metastases to lung [None]

NARRATIVE: CASE EVENT DATE: 201711
